FAERS Safety Report 8785079 (Version 1)
Quarter: 2012Q4

REPORT INFORMATION
  Report Type: Spontaneous
  Country: BE (occurrence: None)
  Receive Date: 20120829
  Receipt Date: 20120829
  Transmission Date: 20130627
  Serious: Yes (Other)
  Sender: FDA-Public Use
  Company Number: B0824775A

PATIENT
  Age: 26 Year
  Sex: Female

DRUGS (4)
  1. ZOVIRAX [Suspect]
  2. CEFTRIAXONE [Suspect]
  3. DOXYCYCLINE HYCLATE [Suspect]
  4. AMPICILLIN TRIHYDRATE [Suspect]

REACTIONS (14)
  - Headache [None]
  - Nervous system disorder [None]
  - Photophobia [None]
  - Pyrexia [None]
  - Somnolence [None]
  - Musculoskeletal stiffness [None]
  - White blood cell count increased [None]
  - C-reactive protein increased [None]
  - Rash [None]
  - Hypotension [None]
  - Agitation [None]
  - Encephalopathy [None]
  - Encephalitis [None]
  - Relapsing fever [None]
